FAERS Safety Report 24398523 (Version 1)
Quarter: 2024Q4

REPORT INFORMATION
  Report Type: Spontaneous
  Country: JP (occurrence: JP)
  Receive Date: 20241004
  Receipt Date: 20241004
  Transmission Date: 20250114
  Serious: Yes (Hospitalization, Other)
  Sender: MERCK
  Company Number: JP-MSD-M2024-39212

PATIENT
  Age: 7 Decade
  Sex: Male

DRUGS (3)
  1. KEYTRUDA [Suspect]
     Active Substance: PEMBROLIZUMAB
     Indication: Bile duct cancer stage IV
     Dosage: 400 MILLIGRAM, EVERY 6 WEEKS
     Route: 041
     Dates: start: 20240925, end: 20240925
  2. GEMCITABINE HYDROCHLORIDE [Concomitant]
     Active Substance: GEMCITABINE HYDROCHLORIDE
     Indication: Bile duct cancer stage IV
     Dosage: UNK
     Route: 041
     Dates: start: 20240925, end: 202409
  3. CISPLATIN [Concomitant]
     Active Substance: CISPLATIN
     Indication: Bile duct cancer stage IV
     Dosage: UNK
     Route: 041
     Dates: start: 20240925, end: 202409

REACTIONS (3)
  - Ischaemic cholecystitis [Not Recovered/Not Resolved]
  - Melaena [Unknown]
  - Shock [Unknown]

NARRATIVE: CASE EVENT DATE: 20240927
